FAERS Safety Report 15402144 (Version 2)
Quarter: 2018Q4

REPORT INFORMATION
  Report Type: Spontaneous
  Country: GB (occurrence: GB)
  Receive Date: 20180919
  Receipt Date: 20181008
  Transmission Date: 20190204
  Serious: Yes (Other)
  Sender: FDA-Public Use
  Company Number: GB-PFIZER INC-2018372284

PATIENT
  Age: 41 Year
  Sex: Female

DRUGS (5)
  1. OTEX [Suspect]
     Active Substance: CARBAMIDE PEROXIDE
     Indication: EXCESSIVE CERUMEN PRODUCTION
     Dosage: 1 DF, 1X/DAY
     Route: 001
     Dates: start: 20180606, end: 20180608
  2. PARACETAMOL [Suspect]
     Active Substance: ACETAMINOPHEN
     Indication: PAIN
     Dosage: 1000 MG, UNK (500 MG STRENGTH)
     Route: 048
     Dates: start: 20180610, end: 20180612
  3. IBUPROFEN. [Suspect]
     Active Substance: IBUPROFEN
     Dosage: 400 MG, 3X/DAY ^EVERY 8 HOURS^
     Route: 048
     Dates: start: 20180608, end: 20180612
  4. COCODAMOL [Suspect]
     Active Substance: ACETAMINOPHEN\CODEINE PHOSPHATE
     Indication: PAIN
     Dosage: 4 DF DAILY 8/500 MG QDS
     Route: 048
     Dates: start: 20180610, end: 20180611
  5. CODEINE [Suspect]
     Active Substance: CODEINE
     Indication: PAIN
     Dosage: 60 MG, 4X/DAY EVERY 6 HOURS (STRENGTH 30MG)
     Route: 048
     Dates: start: 20180611, end: 20180612

REACTIONS (8)
  - Swelling [Recovered/Resolved]
  - Malaise [Unknown]
  - Nausea [Unknown]
  - Instillation site burn [Recovered/Resolved]
  - Ear pain [Recovered/Resolved]
  - External ear cellulitis [Recovered/Resolved]
  - Deafness [Recovering/Resolving]
  - Ear infection [Recovered/Resolved]

NARRATIVE: CASE EVENT DATE: 20180608
